FAERS Safety Report 7725021 (Version 4)
Quarter: 2013Q2

REPORT INFORMATION
  Report Type: Report from Study
  Country: JP (occurrence: JP)
  Receive Date: 20101221
  Receipt Date: 20130401
  Transmission Date: 20140414
  Serious: Yes (Hospitalization)
  Sender: FDA-Public Use
  Company Number: JP-ABBOTT-10P-087-0691207-00

PATIENT
  Age: 30 Year
  Sex: Male

DRUGS (18)
  1. KALETRA TABLETS [Suspect]
     Indication: HIV INFECTION
     Route: 048
     Dates: start: 20090909, end: 20091006
  2. EFAVIRENZ [Suspect]
     Indication: HIV INFECTION
     Route: 048
     Dates: start: 20090928, end: 20100217
  3. ZITHROMAC [Suspect]
     Indication: ANTIBIOTIC PROPHYLAXIS
     Dates: start: 20090910
  4. VALGANCICLOVIR HYDROCHLORIDE [Suspect]
     Indication: CYTOMEGALOVIRUS CHORIORETINITIS
     Route: 048
     Dates: start: 20090903, end: 20100226
  5. VALGANCICLOVIR HYDROCHLORIDE [Suspect]
     Route: 048
     Dates: start: 20100227, end: 20100313
  6. FOSAMPRENAVIR CALCIUM [Suspect]
     Indication: HIV INFECTION
     Route: 048
     Dates: start: 20091113, end: 20100217
  7. LAMIVUDINE [Concomitant]
     Indication: HIV INFECTION
     Route: 048
     Dates: start: 20090909, end: 20100217
  8. ABACAVIR SULFATE [Concomitant]
     Indication: HIV INFECTION
     Route: 048
     Dates: start: 20090909, end: 20100217
  9. EMTRICITABINE W/TENOFOVIR DISOPROXIL FUMARATE [Concomitant]
     Indication: HIV INFECTION
     Route: 048
     Dates: start: 20100218
  10. DARUNAVIR ETHANOLATE [Concomitant]
     Indication: HIV INFECTION
     Route: 048
     Dates: start: 20100218
  11. RALTEGRAVIR POTASSIUM [Concomitant]
     Indication: HIV INFECTION
     Route: 048
     Dates: start: 20091008, end: 20100217
  12. RALTEGRAVIR POTASSIUM [Concomitant]
     Dates: start: 20110907, end: 20120315
  13. PREDNISOLONE ACETATE [Concomitant]
     Indication: HISTIOCYTOSIS HAEMATOPHAGIC
     Dosage: 5-1 MG
     Dates: end: 20100218
  14. SULFAMETHOXAZOLE W/TRIMETHOPRIM [Concomitant]
     Indication: ANTIFUNGAL PROPHYLAXIS
     Route: 048
     Dates: start: 20090908
  15. RITONAVIR [Concomitant]
     Indication: HIV INFECTION
     Route: 048
     Dates: start: 20100218, end: 20110525
  16. RITONAVIR [Concomitant]
     Dates: start: 20110526
  17. ABACAVIR SULFATE W/LAMIVUDINE [Concomitant]
     Indication: HIV INFECTION
     Route: 048
  18. MARAVIROC [Concomitant]
     Indication: HIV INFECTION
     Route: 048
     Dates: start: 20110907

REACTIONS (5)
  - Lymphoma [Recovering/Resolving]
  - Gamma-glutamyltransferase increased [Not Recovered/Not Resolved]
  - Platelet count decreased [Not Recovered/Not Resolved]
  - Blood alkaline phosphatase increased [Recovered/Resolved]
  - Bronchopulmonary aspergillosis [Recovered/Resolved]
